FAERS Safety Report 17891904 (Version 6)
Quarter: 2020Q4

REPORT INFORMATION
  Report Type: Report from Study
  Country: US (occurrence: US)
  Receive Date: 20200612
  Receipt Date: 20201224
  Transmission Date: 20210113
  Serious: Yes (Hospitalization)
  Sender: FDA-Public Use
  Company Number: US-PFIZER INC-2020229066

PATIENT
  Age: 60 Year
  Sex: Male

DRUGS (1)
  1. SUTENT [Suspect]
     Active Substance: SUNITINIB MALATE
     Indication: RENAL CANCER
     Dosage: 50 MG, CYCLIC (ONCE DAILY; 4 WEEKS ON, 2 WEEKS OFF)
     Route: 048
     Dates: start: 202005

REACTIONS (44)
  - Pain of skin [Unknown]
  - Diarrhoea [Not Recovered/Not Resolved]
  - Fatigue [Not Recovered/Not Resolved]
  - Oedema peripheral [Recovering/Resolving]
  - Nail disorder [Unknown]
  - Miliaria [Recovering/Resolving]
  - Taste disorder [Not Recovered/Not Resolved]
  - Hair colour changes [Not Recovered/Not Resolved]
  - Skin irritation [Unknown]
  - Sensitive skin [Unknown]
  - Tinea infection [Recovered/Resolved]
  - Insomnia [Unknown]
  - Dyspnoea [Unknown]
  - Temperature intolerance [Unknown]
  - Humidity intolerance [Unknown]
  - Alopecia [Unknown]
  - Blood pressure increased [Not Recovered/Not Resolved]
  - Back pain [Recovering/Resolving]
  - Abdominal pain upper [Unknown]
  - Blood glucose fluctuation [Not Recovered/Not Resolved]
  - Flatulence [Not Recovered/Not Resolved]
  - Hypersensitivity [Unknown]
  - Anxiety [Unknown]
  - Blood pressure fluctuation [Unknown]
  - Abdominal distension [Unknown]
  - Blood electrolytes abnormal [Unknown]
  - Blood sodium decreased [Unknown]
  - Epistaxis [Not Recovered/Not Resolved]
  - Blood glucose increased [Unknown]
  - Renal pain [Unknown]
  - Dry skin [Unknown]
  - Memory impairment [Unknown]
  - Feeling abnormal [Unknown]
  - Renal disorder [Unknown]
  - Musculoskeletal discomfort [Unknown]
  - Dehydration [Unknown]
  - Weight decreased [Unknown]
  - Pyrexia [Unknown]
  - Poor quality sleep [Unknown]
  - Anaemia [Unknown]
  - Blood creatinine increased [Unknown]
  - Haemoglobin decreased [Unknown]
  - Muscle spasms [Recovering/Resolving]
  - Inflammation [Unknown]

NARRATIVE: CASE EVENT DATE: 2020
